FAERS Safety Report 7570331-5 (Version None)
Quarter: 2011Q2

REPORT INFORMATION
  Report Type: 
  Country: None (occurrence: None)
  Receive Date: 20110622
  Receipt Date: 20110622
  Transmission Date: 20111010
  Serious: Yes (Hospitalization)
  Sender: FDA-Public Use
  Company Number: None

PATIENT
  Sex: Male
  Weight: 95.4 kg

DRUGS (6)
  1. CYCLOPHOSPHAMIDE [Suspect]
     Dosage: 1417 MG
  2. DOXORUBICIN HYDROCHLORIDE [Suspect]
     Dosage: 76 MG
  3. VINCRISTINE SULFATE [Suspect]
     Dosage: 3 MG
  4. ETOPOSIDE [Suspect]
     Dosage: 378 MG
  5. PREDNISONE [Suspect]
     Dosage: 1100 MG
  6. RITUXIMAB (MOAB C2B8 ANTI CD20 CHIMERIC) [Suspect]
     Dosage: 700 MG

REACTIONS (5)
  - WHITE BLOOD CELL COUNT DECREASED [None]
  - HYPERALBUMINAEMIA [None]
  - HYPONATRAEMIA [None]
  - NEUTROPHIL COUNT DECREASED [None]
  - HYPOCALCAEMIA [None]
